FAERS Safety Report 4993077-6 (Version None)
Quarter: 2006Q1

REPORT INFORMATION
  Report Type: 
  Country: None (occurrence: None)
  Receive Date: 20060313
  Receipt Date: 20051214
  Transmission Date: 20060701
  Serious: No
  Sender: FDA-Public Use
  Company Number: 2005-BP-21412BP

PATIENT
  Sex: Female

DRUGS (2)
  1. SPIRIVA [Suspect]
     Dosage: (18 MCG),IH
  2. OVER THE COUNTER EYE DROP [Concomitant]

REACTIONS (1)
  - VITREOUS FLOATERS [None]
